FAERS Safety Report 8468903-9 (Version None)
Quarter: 2012Q2

REPORT INFORMATION
  Report Type: 
  Country: None (occurrence: None)
  Receive Date: 20120620
  Receipt Date: 20120609
  Transmission Date: 20120825
  Serious: Yes (Hospitalization)
  Sender: FDA-Public Use
  Company Number: 2012AP001797

PATIENT
  Age: 64 Year
  Sex: Male

DRUGS (2)
  1. CITALOPRAM HYDROBROMIDE [Suspect]
     Indication: PRODUCT USED FOR UNKNOWN INDICATION
     Dosage: 60 MG
  2. ARIPIPRAZOLE [Suspect]
     Indication: PRODUCT USED FOR UNKNOWN INDICATION
     Dosage: 5 MG

REACTIONS (21)
  - COGWHEEL RIGIDITY [None]
  - BLOOD PRESSURE FLUCTUATION [None]
  - SOMNOLENCE [None]
  - NAUSEA [None]
  - HYPERHIDROSIS [None]
  - ATAXIA [None]
  - SEROTONIN SYNDROME [None]
  - TREMOR [None]
  - DYSSTASIA [None]
  - VERTIGO [None]
  - AGITATION [None]
  - HYPERREFLEXIA [None]
  - DIZZINESS [None]
  - MYDRIASIS [None]
  - TOXICITY TO VARIOUS AGENTS [None]
  - YAWNING [None]
  - COLOUR BLINDNESS ACQUIRED [None]
  - URINARY RETENTION [None]
  - HALLUCINATION, VISUAL [None]
  - MUSCLE CONTRACTIONS INVOLUNTARY [None]
  - CLONUS [None]
